FAERS Safety Report 20027858 (Version 1)
Quarter: 2021Q4

REPORT INFORMATION
  Report Type: Spontaneous
  Country: CA (occurrence: CA)
  Receive Date: 20211103
  Receipt Date: 20211103
  Transmission Date: 20220303
  Serious: Yes (Hospitalization)
  Sender: FDA-Public Use
  Company Number: CA-TEVA-2021-CA-1971571

PATIENT
  Age: 89 Year
  Sex: Female
  Weight: 70 kg

DRUGS (13)
  1. PROPRANOLOL [Suspect]
     Active Substance: PROPRANOLOL HYDROCHLORIDE
     Dosage: 80 MILLIGRAM DAILY;
     Route: 048
  2. ACETAMINOPHEN [Concomitant]
     Active Substance: ACETAMINOPHEN
  3. ADVAIR HFA [Concomitant]
     Active Substance: FLUTICASONE PROPIONATE\SALMETEROL XINAFOATE
  4. CALCIUM\VITAMIN D [Concomitant]
     Active Substance: CALCIUM\VITAMIN D
  5. CELECOXIB [Concomitant]
     Active Substance: CELECOXIB
  6. DICLOFENAC [Concomitant]
     Active Substance: DICLOFENAC
  7. ESCITALOPRAM [Concomitant]
     Active Substance: ESCITALOPRAM OXALATE
  8. HYDROCHLOROTHIAZIDE [Concomitant]
     Active Substance: HYDROCHLOROTHIAZIDE
  9. PANTOPRAZOLE [Concomitant]
     Active Substance: PANTOPRAZOLE
  10. POLYETHYLENE GLYCOL [Concomitant]
     Active Substance: POLYETHYLENE GLYCOL
  11. RANITIDINE [Concomitant]
     Active Substance: RANITIDINE
  12. RIVASTIGMINE [Concomitant]
     Active Substance: RIVASTIGMINE
  13. SENOKOT [Concomitant]
     Active Substance: SENNOSIDES

REACTIONS (2)
  - Cognitive disorder [Recovered/Resolved]
  - Confusional state [Recovered/Resolved]
